FAERS Safety Report 8789195 (Version 2)
Quarter: 2012Q4

REPORT INFORMATION
  Report Type: Spontaneous
  Country: TW (occurrence: None)
  Receive Date: 20120905
  Receipt Date: 20120907
  Transmission Date: 20130627
  Serious: Yes (Death)
  Sender: FDA-Public Use
  Company Number: TW-20120003

PATIENT
  Age: 59 Year
  Sex: Male

DRUGS (3)
  1. LIPIODOL (ETHIODIZED OIL) (ETHIODIZED OIL) [Suspect]
     Indication: CHEMOEMBOLIZATION
     Dosage: (20 ml, 1 in 1 total)
     Route: 013
  2. ADRIAMYCIN [Suspect]
     Indication: CHEMOEMBOLIZATION
     Dosage: (50 mg, 1 in 1 total)
     Route: 013
  3. GELFOAM [Suspect]
     Indication: CHEMOEMBOLIZATION

REACTIONS (8)
  - Acute myocardial infarction [None]
  - Abdominal pain [None]
  - Post procedural complication [None]
  - Cardiogenic shock [None]
  - Coronary artery occlusion [None]
  - Off label use [None]
  - Procedural pain [None]
  - Ejection fraction decreased [None]
